FAERS Safety Report 6128314-8 (Version None)
Quarter: 2009Q1

REPORT INFORMATION
  Report Type: 
  Country: None (occurrence: None)
  Receive Date: 20090323
  Receipt Date: 20090317
  Transmission Date: 20090719
  Serious: Yes (Other)
  Sender: FDA-Public Use
  Company Number: A0773623A

PATIENT
  Age: 60 Year
  Sex: Female

DRUGS (5)
  1. VENTOLIN [Suspect]
     Indication: BRONCHOSPASM
     Dosage: 2PUFF FOUR TIMES PER DAY
     Route: 055
     Dates: start: 20090129, end: 20090205
  2. KLONOPIN [Concomitant]
  3. ATENOLOL [Concomitant]
  4. LEVSIN [Concomitant]
  5. ADVAIR HFA [Concomitant]

REACTIONS (4)
  - DIZZINESS [None]
  - SUFFOCATION FEELING [None]
  - SYNCOPE [None]
  - VOMITING [None]
